FAERS Safety Report 22141422 (Version 4)
Quarter: 2023Q2

REPORT INFORMATION
  Report Type: Spontaneous
  Country: US (occurrence: US)
  Receive Date: 20230327
  Receipt Date: 20230525
  Transmission Date: 20230721
  Serious: Yes (Hospitalization, Other)
  Sender: FDA-Public Use
  Company Number: US-PFIZER INC-PV202300055106

PATIENT
  Age: 19 Year
  Sex: Male

DRUGS (1)
  1. CHANTIX [Suspect]
     Active Substance: VARENICLINE TARTRATE
     Indication: Smoking cessation therapy
     Dosage: UNK (GOT TO DAY 5 OR 6)
     Route: 048
     Dates: start: 2013

REACTIONS (11)
  - Coma [Recovered/Resolved]
  - Abnormal behaviour [Recovered/Resolved]
  - Cerebrovascular accident [Recovered/Resolved]
  - Myocardial infarction [Recovered/Resolved]
  - Brain injury [Recovered/Resolved]
  - Herpes zoster [Recovered/Resolved]
  - Feeling abnormal [Recovered/Resolved]
  - Neck injury [Recovered/Resolved]
  - Post-traumatic stress disorder [Unknown]
  - Respiratory disorder [Unknown]
  - Insomnia [Unknown]

NARRATIVE: CASE EVENT DATE: 20130101
